FAERS Safety Report 21712184 (Version 1)
Quarter: 2022Q4

REPORT INFORMATION
  Report Type: Spontaneous
  Country: US (occurrence: US)
  Receive Date: 20221212
  Receipt Date: 20221212
  Transmission Date: 20230112
  Serious: No
  Sender: FDA-Public Use
  Company Number: US-ORG100016242-2022000749

PATIENT
  Age: 31 Year
  Sex: Male
  Weight: 80.5 kg

DRUGS (6)
  1. EXPAREL [Suspect]
     Active Substance: BUPIVACAINE
     Indication: Haemorrhoid operation
     Route: 050
     Dates: start: 20200730
  2. MARCAINE [Suspect]
     Active Substance: BUPIVACAINE HYDROCHLORIDE
     Indication: Surgery
     Dosage: NOT PROVIDED
     Dates: start: 20200730
  3. TUMS [Concomitant]
     Active Substance: CALCIUM CARBONATE
     Indication: Gastrooesophageal reflux disease
     Dosage: NOT PROVIDED
  4. SEVOFLURANE [Concomitant]
     Active Substance: SEVOFLURANE
     Indication: Anaesthesia
     Dosage: NOT PROVIDED
  5. PROPOFOL [Concomitant]
     Active Substance: PROPOFOL
     Indication: Anaesthesia
     Dosage: NOT PROVIDED
  6. SUCCINYLCHOLINE [Concomitant]
     Active Substance: SUCCINYLCHOLINE

REACTIONS (1)
  - Urinary retention postoperative [Recovered/Resolved]

NARRATIVE: CASE EVENT DATE: 20200730
